FAERS Safety Report 15871028 (Version 1)
Quarter: 2019Q1

REPORT INFORMATION
  Report Type: Other
  Country: US (occurrence: US)
  Receive Date: 20190126
  Receipt Date: 20190126
  Transmission Date: 20190417
  Serious: No
  Sender: FDA-Public Use
  Company Number: US-ACORDA-ACO_153129_2018

PATIENT
  Sex: Female

DRUGS (1)
  1. AMPYRA [Suspect]
     Active Substance: DALFAMPRIDINE
     Indication: PRODUCT USED FOR UNKNOWN INDICATION
     Dosage: 10 MG, Q 12 HRS
     Route: 048
     Dates: start: 20180808

REACTIONS (28)
  - Paraesthesia [Unknown]
  - Memory impairment [Unknown]
  - Dry skin [Unknown]
  - Fall [Not Recovered/Not Resolved]
  - Laryngitis [Unknown]
  - Hypoaesthesia [Unknown]
  - Peroneal nerve palsy [Unknown]
  - Therapy cessation [Unknown]
  - Disturbance in attention [Unknown]
  - Irritability [Unknown]
  - Head injury [Unknown]
  - Fatigue [Unknown]
  - Chills [Unknown]
  - Speech disorder [Unknown]
  - Urinary incontinence [Unknown]
  - Heat illness [Unknown]
  - Influenza like illness [Unknown]
  - Insomnia [Unknown]
  - Drug ineffective [Unknown]
  - Product dose omission [Unknown]
  - Chest injury [Unknown]
  - Neuralgia [Unknown]
  - Hyperhidrosis [Unknown]
  - Gait disturbance [Unknown]
  - Balance disorder [Not Recovered/Not Resolved]
  - Somnolence [Unknown]
  - Sensory loss [Not Recovered/Not Resolved]
  - Pain [Unknown]
